FAERS Safety Report 24777633 (Version 3)
Quarter: 2025Q1

REPORT INFORMATION
  Report Type: Spontaneous
  Country: US (occurrence: US)
  Receive Date: 20241226
  Receipt Date: 20250220
  Transmission Date: 20250408
  Serious: No
  Sender: PFIZER
  Company Number: US-PFIZER INC-PV202400165555

PATIENT
  Age: 37 Year
  Sex: Female

DRUGS (1)
  1. MEDROXYPROGESTERONE ACETATE [Suspect]
     Active Substance: MEDROXYPROGESTERONE ACETATE
     Route: 030

REACTIONS (4)
  - Device connection issue [Unknown]
  - Device leakage [Unknown]
  - Accidental exposure to product [Unknown]
  - Exposure via skin contact [Unknown]
